FAERS Safety Report 13187718 (Version 1)
Quarter: 2017Q1

REPORT INFORMATION
  Report Type: Spontaneous
  Country: US (occurrence: US)
  Receive Date: 20170206
  Receipt Date: 20170206
  Transmission Date: 20170428
  Serious: No
  Sender: FDA-Public Use
  Company Number: US-PFIZER INC-2017051183

PATIENT
  Sex: Female

DRUGS (3)
  1. ETHACRYNIC ACID. [Suspect]
     Active Substance: ETHACRYNIC ACID
     Dosage: 25 MG, 1X/DAY
  2. ASPIRIN. [Concomitant]
     Active Substance: ASPIRIN
     Dosage: UNK
  3. ADVIL [Suspect]
     Active Substance: IBUPROFEN
     Indication: SPINAL COLUMN STENOSIS

REACTIONS (1)
  - Rash pruritic [Unknown]
